FAERS Safety Report 7384487-0 (Version None)
Quarter: 2011Q1

REPORT INFORMATION
  Report Type: 
  Country: None (occurrence: None)
  Receive Date: 20110323
  Receipt Date: 20110308
  Transmission Date: 20110831
  Serious: Yes (Other)
  Sender: FDA-Public Use
  Company Number: 021502

PATIENT
  Sex: Male
  Weight: 75 kg

DRUGS (7)
  1. METOPROLOL SUCCINATE [Concomitant]
  2. NEUPRO [Suspect]
     Dosage: 4 MG QD, TRANSDERMAL
     Route: 062
     Dates: start: 20100601
  3. NEUPRO [Suspect]
     Dosage: 4 MG QD, TRANSDERMAL
     Route: 062
     Dates: start: 20090801, end: 20100301
  4. MIRTAZAPIN [Concomitant]
  5. MADOPAR [Concomitant]
  6. AMANTADINE HCL [Concomitant]
  7. PHENYTOIN [Concomitant]

REACTIONS (3)
  - APPLICATION SITE PRURITUS [None]
  - APPLICATION SITE ERYTHEMA [None]
  - APPLICATION SITE PUSTULES [None]
